FAERS Safety Report 8502886-8 (Version None)
Quarter: 2012Q3

REPORT INFORMATION
  Report Type: 
  Country: None (occurrence: None)
  Receive Date: 20120711
  Receipt Date: 20120702
  Transmission Date: 20120928
  Serious: No
  Sender: FDA-Public Use
  Company Number: US-BAYER-2012-066956

PATIENT
  Age: 52 Year
  Sex: Female

DRUGS (9)
  1. ALEVE (CAPLET) [Suspect]
  2. METFORMIN HCL [Concomitant]
     Dosage: 1 DF, BID
  3. BENAZEPRIL HYDROCHLORIDE [Concomitant]
     Dosage: 1 DF, QD
  4. TRIAMTERENE AND HYDROCHLOROTHIAZIDE [Concomitant]
     Dosage: 1 DF, QD
  5. FOLIC ACID [Concomitant]
     Dosage: 1 DF, QD
  6. CLONIDINE [Concomitant]
     Dosage: 1 DF, TID
  7. NORVASC [Concomitant]
     Dosage: 1 DF, QD
  8. ZETIA [Concomitant]
     Dosage: 1 DF, QD
  9. LANTUS [Concomitant]
     Dosage: 27UNITS, BID
     Route: 058

REACTIONS (2)
  - RASH [None]
  - HYPERSENSITIVITY [None]
